FAERS Safety Report 7719158-1 (Version None)
Quarter: 2011Q3

REPORT INFORMATION
  Report Type: 
  Country: None (occurrence: None)
  Receive Date: 20110830
  Receipt Date: 20110829
  Transmission Date: 20111222
  Serious: Yes (Death, Hospitalization)
  Sender: FDA-Public Use
  Company Number: DE-EISAI INC-E2020-09481-SPO-DE

PATIENT
  Age: 82 Year
  Sex: Female

DRUGS (11)
  1. DELIX PLUS [Concomitant]
     Dosage: 5/25 MG
     Route: 048
  2. ZODIN [Concomitant]
  3. ARICEPT [Suspect]
     Route: 048
     Dates: start: 20090817, end: 20110401
  4. MIRTAZAPINE [Suspect]
     Dosage: 15-30 MG DAILY
     Route: 048
     Dates: start: 20110228, end: 20110401
  5. PANTOPRAZOLE [Concomitant]
     Dosage: 40 MG
  6. SOLIAN [Suspect]
     Dosage: 200-500 MG DAILY
     Route: 048
     Dates: start: 20110221, end: 20110323
  7. SOLIAN [Suspect]
     Dosage: 200 MG DAILY
     Route: 048
     Dates: start: 20110324, end: 20110401
  8. RAMILICH/DELIX [Concomitant]
     Dosage: 5 MG
  9. REVLIMID [Concomitant]
  10. TRIMIPRAMINE MALEATE [Concomitant]
     Dosage: 100
  11. METFORMIN HYDROCHLORIDE [Concomitant]
     Dosage: 1000 MG

REACTIONS (2)
  - VENTRICULAR FIBRILLATION [None]
  - LONG QT SYNDROME [None]
